FAERS Safety Report 15459995 (Version 1)
Quarter: 2018Q4

REPORT INFORMATION
  Report Type: Spontaneous
  Country: US (occurrence: US)
  Receive Date: 20181003
  Receipt Date: 20181003
  Transmission Date: 20190204
  Serious: Yes (Life-Threatening)
  Sender: FDA-Public Use
  Company Number: US-ACS-001216

PATIENT
  Age: 57 Year
  Sex: Male

DRUGS (3)
  1. MEROPENEM. [Suspect]
     Active Substance: MEROPENEM
     Indication: MYCOBACTERIUM ABSCESSUS INFECTION
     Route: 065
     Dates: start: 201803
  2. CLARITHROMYCIN. [Suspect]
     Active Substance: CLARITHROMYCIN
     Indication: MYCOBACTERIUM ABSCESSUS INFECTION
     Route: 065
     Dates: start: 201803
  3. LINEZOLID. [Suspect]
     Active Substance: LINEZOLID
     Indication: MYCOBACTERIUM ABSCESSUS INFECTION
     Route: 065
     Dates: start: 201803

REACTIONS (1)
  - Lactic acidosis [Unknown]

NARRATIVE: CASE EVENT DATE: 201803
